FAERS Safety Report 5157184-X (Version None)
Quarter: 2006Q4

REPORT INFORMATION
  Report Type: 
  Country: None (occurrence: None)
  Receive Date: 20061127
  Receipt Date: 20061031
  Transmission Date: 20070319
  Serious: Yes (Hospitalization)
  Sender: FDA-Public Use
  Company Number: JP-ELI_LILLY_AND_COMPANY-JP200611000020

PATIENT
  Age: 24 Year
  Sex: Female
  Weight: 49 kg

DRUGS (14)
  1. OLANZAPINE [Suspect]
     Indication: PSYCHOMOTOR HYPERACTIVITY
     Dosage: 2.5 MG, DAILY (1/D)
     Route: 048
     Dates: start: 20060919, end: 20060921
  2. DEPAKENE-R                              /JPN/ [Concomitant]
     Indication: PSYCHOMOTOR HYPERACTIVITY
     Dosage: 200 MG, 2/D
     Route: 048
     Dates: start: 20060801, end: 20060828
  3. HERBAL PREPARATION [Concomitant]
     Indication: PSYCHOMOTOR HYPERACTIVITY
     Dosage: 2.5 G, 3/D
     Route: 048
     Dates: start: 20060502
  4. PAXIL [Concomitant]
     Indication: DEPRESSION
     Dosage: 20 MG, DAILY (1/D)
     Route: 048
     Dates: start: 20060509, end: 20060808
  5. PAXIL [Concomitant]
     Dosage: 20 MG, 2/D
     Route: 048
     Dates: start: 20060809
  6. ROHYPNOL                                /NET/ [Concomitant]
     Indication: INSOMNIA
     Dosage: 2 MG, DAILY (1/D)
     Route: 048
     Dates: start: 20060606
  7. LEXOTAN [Concomitant]
     Indication: PSYCHOMOTOR HYPERACTIVITY
     Dosage: 2 MG, 3/D
     Route: 048
     Dates: start: 20060808
  8. PROMETHAZINE HCL [Concomitant]
     Indication: INSOMNIA
     Dosage: 25 MG, DAILY (1/D)
     Route: 048
     Dates: start: 20060627
  9. MYSLEE [Concomitant]
     Indication: INSOMNIA
     Dosage: 10 MG, DAILY (1/D)
     Route: 048
     Dates: start: 20060912
  10. DOGMATYL [Concomitant]
     Indication: DEPRESSION
     Dosage: 50 MG, 2/D
     Route: 048
     Dates: start: 20060711, end: 20060912
  11. OLANZAPINE [Suspect]
     Indication: DEPRESSION
     Dosage: 5 MG, DAILY (1/D)
     Route: 048
     Dates: start: 20060912, end: 20060918
  12. OLANZAPINE [Suspect]
     Dosage: 5 MG, DAILY (1/D)
     Route: 048
     Dates: start: 20060922, end: 20061002
  13. OLANZAPINE [Suspect]
     Dosage: 10 MG, DAILY (1/D)
     Route: 048
     Dates: start: 20061003, end: 20061016
  14. OLANZAPINE [Suspect]
     Dosage: 5 MG, DAILY (1/D)
     Route: 048
     Dates: start: 20061017, end: 20061019

REACTIONS (1)
  - HAEMOLYTIC ANAEMIA [None]
